FAERS Safety Report 4982980-9 (Version None)
Quarter: 2006Q2

REPORT INFORMATION
  Report Type: 
  Country: None (occurrence: None)
  Receive Date: 20060426
  Receipt Date: 20060414
  Transmission Date: 20061013
  Serious: Yes (Other)
  Sender: FDA-Public Use
  Company Number: US-JNJFOC-20060305742

PATIENT
  Sex: Female
  Weight: 57.61 kg

DRUGS (9)
  1. REMICADE [Suspect]
     Route: 042
  2. REMICADE [Suspect]
     Route: 042
  3. REMICADE [Suspect]
     Route: 042
  4. REMICADE [Suspect]
     Indication: RHEUMATOID ARTHRITIS
     Route: 042
  5. PREDNISONE [Concomitant]
  6. METHOTREXATE [Concomitant]
  7. FOLGARD [Concomitant]
  8. HYDROCHLOROTHIAZIDE [Concomitant]
  9. LISINOPRIL [Concomitant]

REACTIONS (1)
  - BREAST CANCER METASTATIC [None]
